FAERS Safety Report 5242917-4 (Version None)
Quarter: 2007Q1

REPORT INFORMATION
  Report Type: 
  Country: None (occurrence: None)
  Receive Date: 20070215
  Receipt Date: 20070202
  Transmission Date: 20070707
  Serious: Yes (Death)
  Sender: FDA-Public Use
  Company Number: 2007BI002558

PATIENT
  Age: 37 Year
  Sex: Female
  Weight: 102.0593 kg

DRUGS (12)
  1. NATALIZUMAB [Suspect]
     Indication: MULTIPLE SCLEROSIS
     Dosage: 300 MG; QM; IV
     Route: 042
     Dates: start: 20070111, end: 20070111
  2. FENTANYL TRANSDERMAL SYSTEM [Concomitant]
  3. LYRICA [Concomitant]
  4. LORTAB [Concomitant]
  5. DETROL LA [Concomitant]
  6. TRILEPTAL [Concomitant]
  7. PHENERGAN HCL [Concomitant]
  8. SEROQUEL [Concomitant]
  9. KLONOPIN [Concomitant]
  10. WELLBUTRIN [Concomitant]
  11. PROZAC [Concomitant]
  12. PERCOCET [Concomitant]

REACTIONS (1)
  - INCORRECT DOSE ADMINISTERED [None]
